FAERS Safety Report 4648356-9 (Version None)
Quarter: 2005Q2

REPORT INFORMATION
  Report Type: 
  Country: None (occurrence: None)
  Receive Date: 20050429
  Receipt Date: 20050420
  Transmission Date: 20051028
  Serious: Yes (Other)
  Sender: FDA-Public Use
  Company Number: US-JNJFOC-20050306496

PATIENT
  Sex: Female
  Weight: 86.64 kg

DRUGS (14)
  1. REMICADE [Suspect]
     Route: 042
  2. REMICADE [Suspect]
     Route: 042
  3. REMICADE [Suspect]
     Route: 042
  4. REMICADE [Suspect]
     Route: 042
  5. REMICADE [Suspect]
     Indication: CROHN'S DISEASE
     Route: 042
  6. SYNTHROID [Concomitant]
  7. LEXAPRO [Concomitant]
  8. PEPCID [Concomitant]
  9. SOMA [Concomitant]
  10. NARCO [Concomitant]
     Indication: PAIN
  11. TIGAN [Concomitant]
     Indication: NAUSEA
  12. TRAZIDONE [Concomitant]
  13. LISINOPRIL [Concomitant]
     Indication: HYPERTENSION
  14. BACLOFEN [Concomitant]

REACTIONS (1)
  - AMNESIA [None]
